FAERS Safety Report 4384710-0 (Version None)
Quarter: 2004Q2

REPORT INFORMATION
  Report Type: 
  Country: None (occurrence: None)
  Receive Date: 20040621
  Receipt Date: 20040609
  Transmission Date: 20050107
  Serious: Yes (Hospitalization)
  Sender: FDA-Public Use
  Company Number: 2004IC000176

PATIENT
  Age: 75 Year
  Sex: Male

DRUGS (4)
  1. FLUOROURACIL [Suspect]
     Indication: NEOPLASM MALIGNANT
     Dosage: 1500 MIG; INTRAVENOUS DRIP
     Route: 041
     Dates: start: 20030725, end: 20030729
  2. AQUPLA (NEDAPLATIN) [Suspect]
     Indication: NEOPLASM MALIGNANT
     Dosage: 100 MG, INTRAVENOUS DRIP
     Route: 041
     Dates: start: 20030730, end: 20030909
  3. TAXOTERE [Concomitant]
     Indication: NEOPLASM MALIGNANT
     Dosage: 80 MG; INTRAVENOUS
     Route: 041
     Dates: start: 20030909, end: 20030909
  4. NEU-UP [Concomitant]

REACTIONS (2)
  - NEUTROPENIA [None]
  - PNEUMOCYSTIS CARINII PNEUMONIA [None]
